FAERS Safety Report 6786941-9 (Version None)
Quarter: 2010Q2

REPORT INFORMATION
  Report Type: 
  Country: None (occurrence: None)
  Receive Date: 20100623
  Receipt Date: 20100618
  Transmission Date: 20101027
  Serious: Yes (Death, Life-Threatening, Hospitalization)
  Sender: FDA-Public Use
  Company Number: AU-CELGENEUS-008-20785-10061822

PATIENT
  Sex: Male

DRUGS (8)
  1. THALOMID [Suspect]
     Route: 048
     Dates: end: 20100427
  2. THALOMID [Suspect]
     Route: 048
     Dates: end: 20100418
  3. THALOMID [Suspect]
     Route: 048
     Dates: start: 20090427
  4. VIDAZA [Suspect]
     Route: 065
     Dates: end: 20100419
  5. VIDAZA [Suspect]
     Route: 065
     Dates: start: 20090427
  6. RED BLOOD CELLS [Concomitant]
     Indication: DRUG USE FOR UNKNOWN INDICATION
     Route: 051
  7. PLATELETS [Concomitant]
     Indication: DRUG USE FOR UNKNOWN INDICATION
     Route: 051
  8. MORPHINE [Concomitant]
     Indication: PAIN
     Route: 065

REACTIONS (2)
  - ACUTE MYELOID LEUKAEMIA [None]
  - MYELODYSPLASTIC SYNDROME TRANSFORMATION [None]
